FAERS Safety Report 24324292 (Version 1)
Quarter: 2024Q3

REPORT INFORMATION
  Report Type: Spontaneous
  Country: IT (occurrence: IT)
  Receive Date: 20240916
  Receipt Date: 20240916
  Transmission Date: 20241017
  Serious: Yes (Other)
  Sender: AMGEN
  Company Number: None

PATIENT
  Age: 55 Year
  Sex: Female
  Weight: 57 kg

DRUGS (1)
  1. PROLIA [Suspect]
     Active Substance: DENOSUMAB
     Indication: Product used for unknown indication
     Dosage: ONE SUBCUTANEOUS INJECTION EVERY 6 MONTHS
     Route: 058
     Dates: start: 20240128

REACTIONS (1)
  - Basal cell carcinoma [Recovering/Resolving]

NARRATIVE: CASE EVENT DATE: 20240420
